FAERS Safety Report 4990079-0 (Version None)
Quarter: 2006Q2

REPORT INFORMATION
  Report Type: 
  Country: None (occurrence: None)
  Receive Date: 20060501
  Receipt Date: 20060501
  Transmission Date: 20061013
  Serious: Yes (Hospitalization)
  Sender: FDA-Public Use
  Company Number: None

PATIENT
  Age: 76 Year
  Sex: Female
  Weight: 35.9 kg

DRUGS (1)
  1. RIFAMPIN [Suspect]
     Indication: TUBERCULOSIS
     Dosage: 450 MG DAILY PO
     Route: 048

REACTIONS (3)
  - ASTHENIA [None]
  - HAEMOLYTIC ANAEMIA [None]
  - WEIGHT DECREASED [None]
